FAERS Safety Report 5003778-1 (Version None)
Quarter: 2006Q2

REPORT INFORMATION
  Report Type: 
  Country: None (occurrence: None)
  Receive Date: 20060516
  Receipt Date: 20050902
  Transmission Date: 20061013
  Serious: Yes (Hospitalization, Disabling, Other)
  Sender: FDA-Public Use
  Company Number: US-MERCK-0509USA00705

PATIENT
  Age: 57 Year
  Sex: Male
  Weight: 82 kg

DRUGS (17)
  1. VIOXX [Suspect]
     Indication: PAIN
     Route: 048
     Dates: end: 20010101
  2. VIOXX [Suspect]
     Route: 048
     Dates: end: 20010101
  3. BUMEX [Concomitant]
     Indication: CARDIAC FAILURE CONGESTIVE
     Route: 065
     Dates: start: 19910101
  4. BUMEX [Concomitant]
     Indication: DYSPNOEA
     Route: 065
     Dates: start: 19910101
  5. DIGOXIN [Concomitant]
     Indication: CARDIAC DISORDER
     Route: 065
     Dates: start: 19830101
  6. NORVASC [Concomitant]
     Indication: BLOOD PRESSURE
     Route: 065
  7. NORVASC [Concomitant]
     Indication: ANGINA PECTORIS
     Route: 065
  8. CAPTOPRIL [Concomitant]
     Indication: BLOOD PRESSURE
     Route: 065
     Dates: start: 19900101, end: 20030101
  9. CAPTOPRIL [Concomitant]
     Indication: ANGINA PECTORIS
     Route: 065
     Dates: start: 19900101, end: 20030101
  10. ZOCOR [Concomitant]
     Indication: BLOOD CHOLESTEROL INCREASED
     Route: 048
     Dates: start: 19970101, end: 20030101
  11. ZOCOR [Concomitant]
     Indication: BLOOD TRIGLYCERIDES INCREASED
     Route: 048
     Dates: start: 19970101, end: 20030101
  12. ZETIA [Concomitant]
     Indication: BLOOD CHOLESTEROL INCREASED
     Route: 048
     Dates: start: 19970101, end: 20030101
  13. ZETIA [Concomitant]
     Indication: ARTERIOSCLEROSIS
     Route: 048
     Dates: start: 19970101, end: 20030101
  14. TYLENOL (CAPLET) [Concomitant]
     Indication: ANALGESIC EFFECT
     Route: 065
     Dates: start: 19990101
  15. NITROGLYCERIN [Concomitant]
     Indication: ANGINA PECTORIS
     Route: 065
  16. K-DUR 10 [Concomitant]
     Route: 065
  17. [THERAPY UNSPECIFIED] [Concomitant]
     Route: 065
     Dates: start: 19950101, end: 20030101

REACTIONS (20)
  - AORTIC VALVE STENOSIS [None]
  - CARDIAC ARREST [None]
  - CARDIAC DISORDER [None]
  - CARDIAC FAILURE CONGESTIVE [None]
  - CORONARY ARTERY DISEASE [None]
  - DIVERTICULITIS [None]
  - DYSPNOEA [None]
  - GASTROINTESTINAL HAEMORRHAGE [None]
  - HAEMATURIA [None]
  - HELICOBACTER GASTRITIS [None]
  - INJURY [None]
  - MYOCARDIAL INFARCTION [None]
  - NAUSEA [None]
  - OEDEMA [None]
  - PEPTIC ULCER [None]
  - PULMONARY HYPERTENSION [None]
  - TYPE IIA HYPERLIPIDAEMIA [None]
  - VENTRICULAR DYSFUNCTION [None]
  - VENTRICULAR FIBRILLATION [None]
  - XANTHOMA [None]
